FAERS Safety Report 7205061-2 (Version None)
Quarter: 2010Q4

REPORT INFORMATION
  Report Type: 
  Country: None (occurrence: None)
  Receive Date: 20101230
  Receipt Date: 20101221
  Transmission Date: 20110411
  Serious: Yes (Hospitalization)
  Sender: FDA-Public Use
  Company Number: GB-ELI_LILLY_AND_COMPANY-GB201012004940

PATIENT
  Age: 14 Year
  Sex: Male
  Weight: 35 kg

DRUGS (1)
  1. STRATTERA [Suspect]
     Indication: ATTENTION DEFICIT/HYPERACTIVITY DISORDER
     Dosage: 25 MG, DAILY (1/D)
     Route: 048
     Dates: start: 20101020, end: 20101025

REACTIONS (4)
  - CONJUNCTIVITIS [None]
  - MOUTH ULCERATION [None]
  - RASH [None]
  - STEVENS-JOHNSON SYNDROME [None]
